FAERS Safety Report 25494819 (Version 1)
Quarter: 2025Q2

REPORT INFORMATION
  Report Type: Spontaneous
  Country: JP (occurrence: JP)
  Receive Date: 20250630
  Receipt Date: 20250630
  Transmission Date: 20250716
  Serious: Yes (Life-Threatening, Hospitalization, Other)
  Sender: NOVO NORDISK
  Company Number: JP-NOVOPROD-1465323

PATIENT
  Age: 6 Decade
  Sex: Male
  Weight: 76 kg

DRUGS (2)
  1. CONCIZUMAB [Suspect]
     Active Substance: CONCIZUMAB
     Indication: Haemophilia
     Dosage: 19 MG, QD
     Route: 058
     Dates: start: 20241212, end: 20250618
  2. DESCOVY [Concomitant]
     Active Substance: EMTRICITABINE\TENOFOVIR ALAFENAMIDE FUMARATE

REACTIONS (1)
  - Myocardial infarction [Unknown]

NARRATIVE: CASE EVENT DATE: 20250619
